FAERS Safety Report 21915506 (Version 1)
Quarter: 2023Q1

REPORT INFORMATION
  Report Type: Spontaneous
  Country: IT (occurrence: IT)
  Receive Date: 20230126
  Receipt Date: 20230126
  Transmission Date: 20230418
  Serious: Yes (Other)
  Sender: FDA-Public Use
  Company Number: IT-002147023-NVSC2023IT011999

PATIENT
  Sex: Male

DRUGS (4)
  1. DASATINIB [Suspect]
     Active Substance: DASATINIB
     Indication: Chronic myeloid leukaemia
     Dosage: UNK (FIRST-LINE)
  2. PONATINIB [Concomitant]
     Active Substance: PONATINIB
     Indication: Chronic myeloid leukaemia
     Dosage: 45 MG (SECOND LINE)
  3. PONATINIB [Concomitant]
     Active Substance: PONATINIB
     Dosage: 30 MG
  4. PONATINIB [Concomitant]
     Active Substance: PONATINIB
     Dosage: 45 MG

REACTIONS (2)
  - Treatment failure [Unknown]
  - Haematotoxicity [Unknown]
